FAERS Safety Report 4478910-9 (Version None)
Quarter: 2004Q4

REPORT INFORMATION
  Report Type: 
  Country: None (occurrence: None)
  Receive Date: 20041018
  Receipt Date: 20041001
  Transmission Date: 20050328
  Serious: Yes (Hospitalization, Other)
  Sender: FDA-Public Use
  Company Number: 2004AL000296

PATIENT
  Age: 68 Year
  Sex: Male

DRUGS (3)
  1. METFORMIN HCL [Suspect]
     Indication: DIABETES MELLITUS
     Dosage: 850 MG; BID
  2. MULTI-VITAMINS [Concomitant]
  3. ASPIRIN [Concomitant]

REACTIONS (4)
  - HAEMOGLOBIN DECREASED [None]
  - HEPATITIS CHOLESTATIC [None]
  - HEPATOCELLULAR DAMAGE [None]
  - WEIGHT DECREASED [None]
